FAERS Safety Report 10928285 (Version 1)
Quarter: 2015Q1

REPORT INFORMATION
  Report Type: Spontaneous
  Country: US (occurrence: None)
  Receive Date: 20150317
  Receipt Date: 20150317
  Transmission Date: 20150721
  Serious: No
  Sender: FDA-Public Use
  Company Number: None

PATIENT
  Sex: Female

DRUGS (1)
  1. LIOTHYRONINE [Suspect]
     Active Substance: LIOTHYRONINE
     Dosage: BEFORE 12/11/13
     Route: 048

REACTIONS (4)
  - Fatigue [None]
  - Hypothyroidism [None]
  - Drug ineffective [None]
  - Product substitution issue [None]
